FAERS Safety Report 19624885 (Version 3)
Quarter: 2023Q2

REPORT INFORMATION
  Report Type: Spontaneous
  Country: US (occurrence: US)
  Receive Date: 20210728
  Receipt Date: 20230531
  Transmission Date: 20230722
  Serious: No
  Sender: FDA-Public Use
  Company Number: US-PFIZER INC-2021751431

PATIENT
  Age: 53 Year
  Sex: Female

DRUGS (1)
  1. XELJANZ [Suspect]
     Active Substance: TOFACITINIB CITRATE
     Indication: Alopecia
     Dosage: UNK

REACTIONS (2)
  - Off label use [Unknown]
  - Drug effective for unapproved indication [Unknown]
